FAERS Safety Report 4614833-X (Version None)
Quarter: 2005Q1

REPORT INFORMATION
  Report Type: 
  Country: None (occurrence: None)
  Receive Date: 20050318
  Receipt Date: 20050318
  Transmission Date: 20050727
  Serious: Yes (Hospitalization)
  Sender: FDA-Public Use
  Company Number: None

PATIENT
  Age: 53 Year
  Sex: Male
  Weight: 75.2971 kg

DRUGS (20)
  1. DOXIL [Suspect]
  2. THALIDOMIDE 50 MG PO Q D [Suspect]
  3. PEGELATED DOXORUBICIN [Suspect]
  4. ASPIRIN [Concomitant]
  5. CITALOPRAM HYDROBROMIDE [Concomitant]
  6. CLONIDINE HCL [Concomitant]
  7. DIVALPREX [Concomitant]
  8. DUCOSATE NA [Concomitant]
  9. FOLIC ACID [Concomitant]
  10. FOSINOPRIL [Concomitant]
  11. FISINOPRIL [Concomitant]
  12. HCTZ/TRIMATERENE [Concomitant]
  13. HEPARIN [Concomitant]
  14. LORATADINE [Concomitant]
  15. MAALOX/LIDOCAINE/DIPHENHYDRAMINE [Concomitant]
  16. METOPROLOL TARTRATE [Concomitant]
  17. MULTI-VITAMIN [Concomitant]
  18. OMEPRASOLE [Concomitant]
  19. TEMAXEPAM [Concomitant]
  20. PHENERGAN [Concomitant]

REACTIONS (3)
  - DYSPHAGIA [None]
  - ORAL CANDIDIASIS [None]
  - PHARYNGOLARYNGEAL PAIN [None]
